FAERS Safety Report 4502422-7 (Version None)
Quarter: 2004Q4

REPORT INFORMATION
  Report Type: 
  Country: None (occurrence: None)
  Receive Date: 20041109
  Receipt Date: 20041026
  Transmission Date: 20050328
  Serious: Yes (Death, Hospitalization)
  Sender: FDA-Public Use
  Company Number: 2004-BP-10744BR

PATIENT
  Age: 87 Year
  Sex: Male

DRUGS (3)
  1. SPIRIVA [Suspect]
     Indication: CHRONIC OBSTRUCTIVE AIRWAYS DISEASE
     Dosage: 18 MCG IH
     Route: 055
     Dates: start: 20040501, end: 20041001
  2. COMBIVENT [Concomitant]
  3. MEDICAMENTO PARA PROSTATA [Concomitant]

REACTIONS (1)
  - PNEUMONIA [None]
